FAERS Safety Report 11571417 (Version 1)
Quarter: 2015Q3

REPORT INFORMATION
  Report Type: Spontaneous
  Country: US (occurrence: US)
  Receive Date: 20150929
  Receipt Date: 20150929
  Transmission Date: 20151125
  Serious: No
  Sender: FDA-Public Use
  Company Number: US-SA-2015SA094537

PATIENT
  Age: 50 Year
  Sex: Female
  Weight: 55.1 kg

DRUGS (17)
  1. PRISTIQ EXTENDED RELEASE [Concomitant]
     Active Substance: DESVENLAFAXINE SUCCINATE
     Dosage: 1 Q AM
  2. BACLOFEN. [Concomitant]
     Active Substance: BACLOFEN
     Dosage: 20 MG
  3. GABAPENTIN. [Concomitant]
     Active Substance: GABAPENTIN
  4. MAXZIDE [Concomitant]
     Active Substance: HYDROCHLOROTHIAZIDE\TRIAMTERENE
     Dosage: 75-50 M 1/2 Q DAY
  5. TRAMADOL HYDROCHLORIDE. [Concomitant]
     Active Substance: TRAMADOL HYDROCHLORIDE
     Dosage: 50 MG
  6. VITAMIN B12 [Concomitant]
     Active Substance: CYANOCOBALAMIN
     Dosage: 1000 M / TWICE A MONTH
  7. AUBAGIO [Suspect]
     Active Substance: TERIFLUNOMIDE
     Indication: MULTIPLE SCLEROSIS
     Route: 048
     Dates: start: 20150316, end: 20150616
  8. ABILIFY [Concomitant]
     Active Substance: ARIPIPRAZOLE
     Dosage: AT 6:30 PM
     Route: 048
  9. CYANOCOBALAMIN. [Concomitant]
     Active Substance: CYANOCOBALAMIN
     Dosage: INJECT ONE CC INTRAM
  10. AUBAGIO [Suspect]
     Active Substance: TERIFLUNOMIDE
     Indication: MULTIPLE SCLEROSIS
     Route: 048
     Dates: start: 2015
  11. XANAX [Concomitant]
     Active Substance: ALPRAZOLAM
     Route: 048
  12. ALEVE [Concomitant]
     Active Substance: NAPROXEN SODIUM
     Dosage: 220 MG
  13. DEPO-PROVERA [Concomitant]
     Active Substance: MEDROXYPROGESTERONE ACETATE
     Dosage: 1 Q 3 MONTHS
  14. PROZAC [Concomitant]
     Active Substance: FLUOXETINE HYDROCHLORIDE
  15. K-DUR [Concomitant]
     Active Substance: POTASSIUM CHLORIDE
  16. ASA [Concomitant]
     Active Substance: ASPIRIN
  17. BRINTELLIX [Concomitant]
     Active Substance: VORTIOXETINE HYDROBROMIDE
     Indication: URINARY TRACT INFECTION

REACTIONS (5)
  - Hypoaesthesia oral [Recovered/Resolved]
  - Hypoaesthesia [Recovered/Resolved]
  - Paraesthesia [Recovered/Resolved]
  - Alopecia [Unknown]
  - Headache [Recovered/Resolved]

NARRATIVE: CASE EVENT DATE: 20150616
